FAERS Safety Report 8089141-8 (Version None)
Quarter: 2012Q1

REPORT INFORMATION
  Report Type: 
  Country: None (occurrence: None)
  Receive Date: 20120128
  Receipt Date: 20110711
  Transmission Date: 20120608
  Serious: No
  Sender: FDA-Public Use
  Company Number: US-ABBOTT-11P-163-0838238-00

PATIENT
  Age: 73 Year
  Sex: Male

DRUGS (4)
  1. WARFARIN SODIUM [Concomitant]
     Indication: THROMBOSIS
     Dosage: DAILY
  2. ALTACE [Concomitant]
     Indication: HYPERTENSION
     Dosage: DAILY
  3. WARFARIN SODIUM [Concomitant]
  4. HUMIRA [Suspect]
     Indication: COLITIS ULCERATIVE
     Dates: start: 20100125

REACTIONS (2)
  - INJECTION SITE PAIN [None]
  - INJECTION SITE HAEMORRHAGE [None]
